FAERS Safety Report 5127793-2 (Version None)
Quarter: 2006Q4

REPORT INFORMATION
  Report Type: 
  Country: None (occurrence: None)
  Receive Date: 20061016
  Receipt Date: 20061005
  Transmission Date: 20070319
  Serious: Yes (Other)
  Sender: FDA-Public Use
  Company Number: JP-ROCHE-465964

PATIENT
  Age: 49 Year
  Sex: Female

DRUGS (2)
  1. ANEXATE TAB [Suspect]
     Indication: DRUG USE FOR UNKNOWN INDICATION
     Route: 042
     Dates: start: 20060808, end: 20060808
  2. HORIZON [Suspect]
     Indication: DRUG USE FOR UNKNOWN INDICATION
     Route: 042
     Dates: start: 20060808, end: 20060808

REACTIONS (1)
  - VASCULITIS [None]
